FAERS Safety Report 11776348 (Version 4)
Quarter: 2016Q2

REPORT INFORMATION
  Report Type: Spontaneous
  Country: US (occurrence: US)
  Receive Date: 20151125
  Receipt Date: 20160418
  Transmission Date: 20160815
  Serious: Yes (Other)
  Sender: FDA-Public Use
  Company Number: US-BEH-2015055960

PATIENT
  Age: 75 Year
  Sex: Female
  Weight: 108 kg

DRUGS (29)
  1. ACETAMINOPHEN. [Concomitant]
     Active Substance: ACETAMINOPHEN
  2. DIPHENHYDRAMINE. [Concomitant]
     Active Substance: DIPHENHYDRAMINE
  3. BENZOCAINE. [Concomitant]
     Active Substance: BENZOCAINE
  4. HIZENTRA [Suspect]
     Active Substance: HUMAN IMMUNOGLOBULIN G
     Indication: IMMUNODEFICIENCY COMMON VARIABLE
     Route: 058
  5. ASPIRIN. [Concomitant]
     Active Substance: ASPIRIN
  6. LIPITOR [Concomitant]
     Active Substance: ATORVASTATIN CALCIUM
  7. CELEXA [Concomitant]
     Active Substance: CITALOPRAM HYDROBROMIDE
  8. FLAXSEED [Concomitant]
     Active Substance: FLAX SEED
  9. HIZENTRA [Suspect]
     Active Substance: HUMAN IMMUNOGLOBULIN G
     Dosage: 10 GM 50 ML VIALS
     Route: 058
     Dates: start: 20150807
  10. EPIPEN [Concomitant]
     Active Substance: EPINEPHRINE
  11. GLUCOPHAGE [Concomitant]
     Active Substance: METFORMIN HYDROCHLORIDE
  12. VITAMIN D3 [Concomitant]
     Active Substance: CHOLECALCIFEROL
  13. HIZENTRA [Suspect]
     Active Substance: HUMAN IMMUNOGLOBULIN G
     Route: 058
     Dates: start: 20150805
  14. SINGULAIR [Concomitant]
     Active Substance: MONTELUKAST SODIUM
  15. ADVAIR HFA [Concomitant]
     Active Substance: FLUTICASONE PROPIONATE\SALMETEROL XINAFOATE
  16. LEVAQUIN [Concomitant]
     Active Substance: LEVOFLOXACIN
  17. CIPRO [Concomitant]
     Active Substance: CIPROFLOXACIN HYDROCHLORIDE
  18. COMBIVENT RESPIMAT [Concomitant]
     Active Substance: ALBUTEROL SULFATE\IPRATROPIUM BROMIDE
  19. FISH OIL [Concomitant]
     Active Substance: FISH OIL
  20. ACTOS [Concomitant]
     Active Substance: PIOGLITAZONE HYDROCHLORIDE
  21. GENTAMICIN. [Concomitant]
     Active Substance: GENTAMICIN
  22. LIDOCAINE. [Concomitant]
     Active Substance: LIDOCAINE
  23. CENTRUM SILVER [Concomitant]
     Active Substance: MINERALS\VITAMINS
  24. ALLEGRA [Concomitant]
     Active Substance: FEXOFENADINE HYDROCHLORIDE
  25. CALCIUM MAGNESIUM ZINC VITAMIN D [Concomitant]
  26. ANTIPYRINE BENZOCAINE [Concomitant]
  27. PREDNISONE. [Concomitant]
     Active Substance: PREDNISONE
  28. FOSAMAX [Concomitant]
     Active Substance: ALENDRONATE SODIUM
  29. TEKTURNA [Concomitant]
     Active Substance: ALISKIREN HEMIFUMARATE

REACTIONS (2)
  - Lung infection [Recovering/Resolving]
  - Lung infection [Unknown]

NARRATIVE: CASE EVENT DATE: 201511
